FAERS Safety Report 12660500 (Version 2)
Quarter: 2016Q3

REPORT INFORMATION
  Report Type: Spontaneous
  Country: US (occurrence: US)
  Receive Date: 20160817
  Receipt Date: 20160824
  Transmission Date: 20161109
  Serious: No
  Sender: FDA-Public Use
  Company Number: US-BRISTOL-MYERS SQUIBB COMPANY-BMS-2016-066595

PATIENT
  Sex: Female

DRUGS (1)
  1. SPRYCEL [Suspect]
     Active Substance: DASATINIB
     Indication: PRODUCT USED FOR UNKNOWN INDICATION
     Dosage: 5 TAB, QD
     Route: 065
     Dates: start: 20160803

REACTIONS (6)
  - Dysphemia [Unknown]
  - Headache [Recovered/Resolved]
  - Vomiting [Recovered/Resolved]
  - Vaginal infection [Unknown]
  - Dyspepsia [Recovered/Resolved]
  - Nausea [Unknown]
